FAERS Safety Report 10497469 (Version 1)
Quarter: 2014Q4

REPORT INFORMATION
  Report Type: Spontaneous
  Country: US (occurrence: US)
  Receive Date: 20141006
  Receipt Date: 20141006
  Transmission Date: 20150528
  Serious: No
  Sender: FDA-Public Use
  Company Number: US-BAYER-2014-146937

PATIENT
  Age: 62 Year
  Sex: Male
  Weight: 78.91 kg

DRUGS (3)
  1. ALEVE [Suspect]
     Active Substance: NAPROXEN SODIUM
     Indication: ANALGESIC THERAPY
     Dosage: 1 DF, PRN
     Route: 048
     Dates: start: 2012
  2. ALEVE [Suspect]
     Active Substance: NAPROXEN SODIUM
     Indication: ARTHRALGIA
  3. ALEVE [Suspect]
     Active Substance: NAPROXEN SODIUM
     Indication: EPICONDYLITIS
     Dosage: 1 DF IN MORNING AND 1 DF AT NIGHT, EVERYDAY
     Route: 048
     Dates: start: 201408

REACTIONS (3)
  - Incorrect drug administration duration [None]
  - Expired product administered [None]
  - Off label use [None]

NARRATIVE: CASE EVENT DATE: 201408
